FAERS Safety Report 4774914-7 (Version None)
Quarter: 2005Q3

REPORT INFORMATION
  Report Type: 
  Country: None (occurrence: None)
  Receive Date: 20050921
  Receipt Date: 20050909
  Transmission Date: 20060218
  Serious: Yes (Hospitalization)
  Sender: FDA-Public Use
  Company Number: FR-BRISTOL-MYERS SQUIBB COMPANY-13107321

PATIENT
  Age: 59 Year
  Sex: Male
  Weight: 92 kg

DRUGS (7)
  1. ELISOR TABS [Suspect]
     Indication: GOUTY ARTHRITIS
     Route: 048
  2. DOLIPRANE [Suspect]
     Indication: BRONCHITIS ACUTE
     Dates: start: 20041025, end: 20041025
  3. SURBRONC [Suspect]
     Indication: BRONCHITIS ACUTE
     Dates: start: 20041025, end: 20041025
  4. IBUPROFEN [Suspect]
     Indication: BRONCHITIS ACUTE
     Dates: start: 20041025, end: 20041025
  5. KARDEGIC [Suspect]
     Indication: MYOCARDIAL INFARCTION
  6. VERAPAMIL [Suspect]
     Indication: HYPERTENSION
  7. NITROGLYCERIN [Concomitant]

REACTIONS (11)
  - ASTHENIA [None]
  - BRONCHITIS ACUTE [None]
  - CONDITION AGGRAVATED [None]
  - HYPOTENSION [None]
  - INFLUENZA LIKE ILLNESS [None]
  - LUNG DISORDER [None]
  - MALAISE [None]
  - MYALGIA [None]
  - PNEUMONIA [None]
  - SEPSIS [None]
  - SEPTIC SHOCK [None]
